FAERS Safety Report 5168166-6 (Version None)
Quarter: 2006Q4

REPORT INFORMATION
  Report Type: 
  Country: None (occurrence: None)
  Receive Date: 20061208
  Receipt Date: 20061128
  Transmission Date: 20070319
  Serious: Yes (Other)
  Sender: FDA-Public Use
  Company Number: 2006AP05638

PATIENT
  Age: 26803 Day
  Sex: Male

DRUGS (5)
  1. CRESTOR [Suspect]
     Indication: HYPERLIPIDAEMIA
     Route: 048
     Dates: start: 20060127, end: 20060421
  2. ASPIRIN [Concomitant]
     Indication: ANALGESIC THERAPY
     Route: 048
     Dates: start: 20030425
  3. LERCANIDIPINE [Concomitant]
     Indication: HYPERTENSION
     Route: 048
     Dates: start: 20030425
  4. GLIMEPIRIDE [Concomitant]
     Route: 048
     Dates: start: 20030425
  5. ACARBOSE [Concomitant]
     Route: 048
     Dates: start: 20030425

REACTIONS (1)
  - HEPATOTOXICITY [None]
